FAERS Safety Report 5959617-5 (Version None)
Quarter: 2008Q4

REPORT INFORMATION
  Report Type: 
  Country: None (occurrence: None)
  Receive Date: 20081116
  Receipt Date: 20080421
  Transmission Date: 20090506
  Serious: Yes (Other)
  Sender: FDA-Public Use
  Company Number: US200804000137

PATIENT
  Age: 51 Year
  Sex: Male
  Weight: 86.2 kg

DRUGS (12)
  1. PROZAC [Suspect]
     Indication: DEPRESSION
     Dosage: UNK, UNK
  2. OMEGA-3 MARINE TRIGLYCERIDES (OMEGA-3 MARINE TRIGLYCERIDES) [Concomitant]
  3. PLAVIX(CLOPIDOGREL SULFATE)UNK TO UNK [Concomitant]
  4. ACETYLSALICYLIC ACID(ACETYLSALICYLIC ACID) UNK TO UNK [Concomitant]
  5. LISINOPRIL(LISINOPRIL)  UNK TO UNK [Concomitant]
  6. TRIAMTERENE(TRIAMTERENE)  UNK TO UNK [Concomitant]
  7. OMEPRAZOLE(OMEPRAZOLE)  UNK TO UNK [Concomitant]
  8. ATENOLOL(ATENOLOL)  UNK TO UNK [Concomitant]
  9. SIMVASTATIN(SIMVASTATIN)  UNK TO UNK [Concomitant]
  10. VICODIN(HYDROCODONE BITARTRATE, PARACETAMOL)  UNK TO UNK [Concomitant]
  11. GLYCERYL TRINITRATE (GLYCERYL TRINITRATE)  UNK TO UNK [Concomitant]
  12. XANAX(ALPRAZOLAM)  UNK TO UNK [Concomitant]

REACTIONS (9)
  - ABNORMAL DREAMS [None]
  - AGGRESSION [None]
  - DRUG INTERACTION [None]
  - FEELINGS OF WORTHLESSNESS [None]
  - HYPERHIDROSIS [None]
  - IMPRISONMENT [None]
  - INFLUENZA [None]
  - SUICIDAL IDEATION [None]
  - VIOLENCE-RELATED SYMPTOM [None]
